FAERS Safety Report 5737041-8 (Version None)
Quarter: 2008Q2

REPORT INFORMATION
  Report Type: 
  Country: None (occurrence: None)
  Receive Date: 20080508
  Receipt Date: 20080423
  Transmission Date: 20081010
  Serious: Yes (Other)
  Sender: FDA-Public Use
  Company Number: 220004M08GBR

PATIENT
  Age: 13 Year
  Sex: Male

DRUGS (2)
  1. SOMATROPIN (SOMATROPIN) [Suspect]
     Dosage: SUBCUTANEOUS
     Route: 058
  2. ANTINEOPLASTIC AGENTS [Concomitant]

REACTIONS (3)
  - GERM CELL CANCER [None]
  - NEOPLASM RECURRENCE [None]
  - NEUROLOGICAL SYMPTOM [None]
